FAERS Safety Report 10248752 (Version 3)
Quarter: 2014Q3

REPORT INFORMATION
  Report Type: Spontaneous
  Country: FR (occurrence: None)
  Receive Date: 20140618
  Receipt Date: 20140926
  Transmission Date: 20150326
  Serious: Yes (Other)
  Sender: FDA-Public Use
  Company Number: 2014-19748

PATIENT
  Age: 67 Year
  Sex: Female

DRUGS (1)
  1. EYLEA [Suspect]
     Active Substance: AFLIBERCEPT
     Indication: RETINAL PIGMENT EPITHELIOPATHY

REACTIONS (5)
  - Visual acuity reduced [None]
  - Intraocular pressure increased [None]
  - Off label use [None]
  - Vitritis [None]
  - Viral uveitis [None]
